FAERS Safety Report 4878555-2 (Version None)
Quarter: 2006Q1

REPORT INFORMATION
  Report Type: 
  Country: None (occurrence: None)
  Receive Date: 20060110
  Receipt Date: 20051214
  Transmission Date: 20060701
  Serious: Yes (Hospitalization)
  Sender: FDA-Public Use
  Company Number: 2005-12-0853

PATIENT
  Age: 65 Year
  Sex: Male
  Weight: 66 kg

DRUGS (4)
  1. DACARBAZINE [Suspect]
     Indication: METASTATIC MALIGNANT MELANOMA
     Dosage: 1730 MG INTRAVENOUS
     Route: 042
     Dates: start: 20051010, end: 20051212
  2. NEXIUM [Concomitant]
  3. ATIVAN [Concomitant]
  4. (APREPITANT) [Concomitant]

REACTIONS (3)
  - DIVERTICULITIS [None]
  - NEPHROLITHIASIS [None]
  - URETERIC OBSTRUCTION [None]
